FAERS Safety Report 4532923-7 (Version None)
Quarter: 2004Q4

REPORT INFORMATION
  Report Type: 
  Country: None (occurrence: None)
  Receive Date: 20041221
  Receipt Date: 20041026
  Transmission Date: 20050328
  Serious: Yes (Hospitalization, Other)
  Sender: FDA-Public Use
  Company Number: PHHO2004FR15637

PATIENT
  Age: 25 Year
  Sex: Female
  Weight: 83 kg

DRUGS (4)
  1. KENZEN [Concomitant]
  2. OMEPRAZOLE [Concomitant]
     Dates: start: 20040915
  3. GLEEVEC [Suspect]
     Indication: FIBROMATOSIS
     Dosage: 400 MG, QD
     Route: 048
     Dates: start: 20040915, end: 20041019
  4. GLEEVEC [Suspect]
     Dosage: 100 MG, QD
     Route: 048
     Dates: start: 20041109, end: 20041111

REACTIONS (12)
  - BLOOD CREATINE PHOSPHOKINASE INCREASED [None]
  - COUGH [None]
  - ECZEMA [None]
  - EOSINOPHILIA [None]
  - HAEMATOMA [None]
  - HEADACHE [None]
  - MUSCLE CRAMP [None]
  - MYALGIA [None]
  - PRURITUS [None]
  - RASH VESICULAR [None]
  - RENAL IMPAIRMENT [None]
  - RHABDOMYOLYSIS [None]
